FAERS Safety Report 11699713 (Version 1)
Quarter: 2015Q4

REPORT INFORMATION
  Report Type: Spontaneous
  Country: US (occurrence: US)
  Receive Date: 20151105
  Receipt Date: 20151105
  Transmission Date: 20160304
  Serious: Yes (Other)
  Sender: FDA-Public Use
  Company Number: US-RECORDATI RARE DISEASES-US-R13005-15-00170

PATIENT
  Age: 31 Week

DRUGS (4)
  1. PANHEMATIN [Suspect]
     Active Substance: HEMIN
     Indication: PORPHYRIA ACUTE
     Route: 064
  2. PANHEMATIN [Suspect]
     Active Substance: HEMIN
     Dosage: 2 DOSES
     Route: 064
     Dates: start: 201509, end: 201509
  3. PANHEMATIN [Suspect]
     Active Substance: HEMIN
     Dosage: 6 DOSES
     Route: 064
     Dates: start: 20151022, end: 20151027
  4. PANHEMATIN [Suspect]
     Active Substance: HEMIN
     Dosage: 4 DOSES
     Route: 064
     Dates: start: 20151012, end: 201510

REACTIONS (3)
  - Foetal heart rate abnormal [Unknown]
  - Maternal drugs affecting foetus [None]
  - Foetal exposure during pregnancy [Unknown]

NARRATIVE: CASE EVENT DATE: 20150914
